FAERS Safety Report 13943084 (Version 1)
Quarter: 2017Q3

REPORT INFORMATION
  Report Type: Spontaneous
  Country: US (occurrence: None)
  Receive Date: 20170907
  Receipt Date: 20170907
  Transmission Date: 20171128
  Serious: Yes (Hospitalization, Other)
  Sender: FDA-Public Use
  Company Number: None

PATIENT
  Age: 32 Year
  Sex: Male
  Weight: 113.26 kg

DRUGS (1)
  1. ZOLPIDEM [Suspect]
     Active Substance: ZOLPIDEM\ZOLPIDEM TARTRATE
     Indication: INSOMNIA
     Dosage: 5-10 MG AT BEDTIME PO
     Route: 048
     Dates: start: 20170425, end: 20170514

REACTIONS (5)
  - Asthenia [None]
  - Amnesia [None]
  - Road traffic accident [None]
  - Suicidal ideation [None]
  - Confusional state [None]

NARRATIVE: CASE EVENT DATE: 20170514
